FAERS Safety Report 4549657-5 (Version None)
Quarter: 2005Q1

REPORT INFORMATION
  Report Type: 
  Country: None (occurrence: None)
  Receive Date: 20050111
  Receipt Date: 20050104
  Transmission Date: 20050727
  Serious: Yes (Other)
  Sender: FDA-Public Use
  Company Number: GB-GLAXOSMITHKLINE-B0363375A

PATIENT
  Age: 27 Year
  Sex: Male
  Weight: 86 kg

DRUGS (2)
  1. ZYBAN [Suspect]
     Dosage: 150MG PER DAY
     Route: 048
     Dates: start: 20041204, end: 20041212
  2. LANSOPRAZOLE [Concomitant]
     Dosage: 30MG PER DAY
     Route: 048
     Dates: start: 20040902

REACTIONS (2)
  - PERIORBITAL OEDEMA [None]
  - URTICARIA [None]
